FAERS Safety Report 23827860 (Version 1)
Quarter: 2024Q2

REPORT INFORMATION
  Report Type: Spontaneous
  Country: US (occurrence: US)
  Receive Date: 20240507
  Receipt Date: 20240507
  Transmission Date: 20240716
  Serious: No
  Sender: FDA-Public Use
  Company Number: US-JNJFOC-20240516721

PATIENT
  Sex: Female

DRUGS (6)
  1. SPRAVATO [Suspect]
     Active Substance: ESKETAMINE
     Indication: Major depression
     Dosage: PATIENT HAS NOT HAS THIS MEDICATION SINCE THE LAST WEEK OF DECEMBER
     Route: 045
  2. SPRAVATO [Suspect]
     Active Substance: ESKETAMINE
     Route: 045
  3. CYMBALTA [Concomitant]
     Active Substance: DULOXETINE HYDROCHLORIDE
  4. METHYLPHENIDATE HYDROCHLORIDE [Concomitant]
     Active Substance: METHYLPHENIDATE HYDROCHLORIDE
  5. CONCERTA [Concomitant]
     Active Substance: METHYLPHENIDATE HYDROCHLORIDE
  6. LITHIUM CARBONATE [Concomitant]
     Active Substance: LITHIUM CARBONATE

REACTIONS (2)
  - Adverse drug reaction [Unknown]
  - Depression [Unknown]
